FAERS Safety Report 11215713 (Version 2)
Quarter: 2015Q3

REPORT INFORMATION
  Report Type: Spontaneous
  Country: US (occurrence: US)
  Receive Date: 20150624
  Receipt Date: 20150708
  Transmission Date: 20151125
  Serious: Yes (Other)
  Sender: FDA-Public Use
  Company Number: US-UCBSA-2015019967

PATIENT
  Sex: Male

DRUGS (1)
  1. KEPPRA XR [Suspect]
     Active Substance: LEVETIRACETAM
     Indication: SEIZURE
     Dosage: 1000 MG, 2X/DAY (BID)
     Route: 048

REACTIONS (2)
  - Off label use [Unknown]
  - Haemangioblastoma [Not Recovered/Not Resolved]
